FAERS Safety Report 16772292 (Version 1)
Quarter: 2019Q3

REPORT INFORMATION
  Report Type: Spontaneous
  Country: AU (occurrence: AU)
  Receive Date: 20190904
  Receipt Date: 20190904
  Transmission Date: 20191005
  Serious: Yes (Other)
  Sender: FDA-Public Use
  Company Number: AU-EISAI MEDICAL RESEARCH-EC-2019-061310

PATIENT

DRUGS (1)
  1. FYCOMPA [Suspect]
     Active Substance: PERAMPANEL
     Indication: RESTLESS LEGS SYNDROME
     Dosage: DOSE AND FREQUENCY NOT PROVIDED
     Route: 048

REACTIONS (2)
  - Acute psychosis [Recovered/Resolved]
  - Product use in unapproved indication [Recovered/Resolved]
